FAERS Safety Report 6814328-9 (Version None)
Quarter: 2010Q3

REPORT INFORMATION
  Report Type: 
  Country: None (occurrence: None)
  Receive Date: 20100702
  Receipt Date: 20100625
  Transmission Date: 20110219
  Serious: Yes (Other)
  Sender: FDA-Public Use
  Company Number: GB-JNJFOC-20100607457

PATIENT
  Age: 79 Year
  Sex: Female

DRUGS (12)
  1. LEVOFLOXACIN [Suspect]
     Indication: ABSCESS LIMB
     Route: 048
  2. LEVOFLOXACIN [Suspect]
     Indication: CELLULITIS
     Route: 048
  3. LANSOPRAZOLE [Concomitant]
     Route: 065
  4. ADCAL D3 [Concomitant]
     Route: 065
  5. ASPIRIN [Concomitant]
     Route: 065
  6. BECLOMETHASONE DIPROPIONATE [Concomitant]
     Route: 065
  7. HYDROXOCOBALAMIN [Concomitant]
     Route: 065
  8. LEVOTHYROXINE SODIUM [Concomitant]
     Route: 065
  9. LOSARTAN POSTASSIUM [Concomitant]
     Route: 065
  10. MONTELUKAST SODIUM [Concomitant]
     Route: 065
  11. ACETAMINOPHEN [Concomitant]
     Route: 065
  12. ALBUTEROL [Concomitant]
     Route: 065

REACTIONS (3)
  - BRONCHITIS [None]
  - DYSPNOEA [None]
  - WHEEZING [None]
